FAERS Safety Report 11805966 (Version 2)
Quarter: 2016Q1

REPORT INFORMATION
  Report Type: Report from Study
  Country: CN (occurrence: CN)
  Receive Date: 20151207
  Receipt Date: 20160301
  Transmission Date: 20160525
  Serious: Yes (Life-Threatening, Hospitalization)
  Sender: FDA-Public Use
  Company Number: CN-ROCHE-1670013

PATIENT
  Age: 60 Year
  Sex: Male
  Weight: 62 kg

DRUGS (3)
  1. TRASTUZUMAB [Suspect]
     Active Substance: TRASTUZUMAB
     Indication: HER-2 POSITIVE GASTRIC CANCER
     Dosage: LAST DOSE PRIOR TO SAE: 17/NOV/2015?DATE OF LAST DOSE (372 MG) PRIOR TO SAE: 10/FEB/2016
     Route: 041
     Dates: start: 20151117
  2. DOCETAXEL. [Suspect]
     Active Substance: DOCETAXEL
     Indication: HER-2 POSITIVE GASTRIC CANCER
     Dosage: DAY 1, EVERY THREE WEEK?LAST DOSE PRIOR TO SAE: 17/NOV/2015?DATE OF LAST DOSE (75 MG) PRIOR TO SAE:
     Route: 041
     Dates: start: 20151117
  3. CAPECITABINE. [Suspect]
     Active Substance: CAPECITABINE
     Indication: HER-2 POSITIVE GASTRIC CANCER
     Dosage: DAY1 AND DAY 14 EVERY THREE WEEK. LAST DOSE PRIOR TO SAE: 24/NOV/2015?1500 MG AM,2000MG PM, CYCLE ON
     Route: 048
     Dates: start: 20151117, end: 20151124

REACTIONS (3)
  - White blood cell count decreased [Recovered/Resolved]
  - Intestinal obstruction [Recovered/Resolved with Sequelae]
  - Neutrophil count decreased [Recovered/Resolved]

NARRATIVE: CASE EVENT DATE: 20151124
